FAERS Safety Report 10082195 (Version 1)
Quarter: 2014Q2

REPORT INFORMATION
  Report Type: Report from Study
  Country: US (occurrence: US)
  Receive Date: 20140416
  Receipt Date: 20140416
  Transmission Date: 20141212
  Serious: No
  Sender: FDA-Public Use
  Company Number: PHEH2014US007228

PATIENT
  Sex: Male
  Weight: 136.5 kg

DRUGS (3)
  1. TASIGNA [Suspect]
     Indication: CHRONIC MYELOID LEUKAEMIA
     Dosage: 300 MG, BID
     Route: 048
     Dates: start: 20130524
  2. PREPOPIK [Concomitant]
     Dosage: UNK UKN, UNK
  3. MULTI-VIT [Concomitant]
     Dosage: UNK UKN, UNK

REACTIONS (3)
  - Cough [Unknown]
  - Productive cough [Unknown]
  - Sputum discoloured [Unknown]
